FAERS Safety Report 4555804-1 (Version None)
Quarter: 2005Q1

REPORT INFORMATION
  Report Type: 
  Country: None (occurrence: None)
  Receive Date: 20050119
  Receipt Date: 20041221
  Transmission Date: 20050727
  Serious: Yes (Life-Threatening, Other)
  Sender: FDA-Public Use
  Company Number: FR-BRISTOL-MYERS SQUIBB COMPANY-12802849

PATIENT
  Age: 77 Year
  Sex: Female

DRUGS (12)
  1. SOTALEX TABS 80 MG [Suspect]
     Indication: ATRIAL FIBRILLATION
     Route: 048
  2. SOTALEX TABS 80 MG [Suspect]
     Indication: ATRIAL FLUTTER
     Route: 048
  3. METFORMIN HCL [Suspect]
  4. PRAVASTATIN [Suspect]
  5. FUROSEMIDE [Suspect]
  6. GLICLAZIDE [Suspect]
     Route: 048
  7. PREVISCAN [Suspect]
     Route: 048
  8. COVERSYL [Suspect]
     Route: 048
  9. EFFEXOR [Suspect]
     Indication: DEPRESSION
     Dosage: 50MG, 200MG DAY
     Route: 048
  10. DIFFU-K [Suspect]
  11. ISOMERIDE [Suspect]
  12. TRACLEER [Concomitant]
     Indication: PULMONARY HYPERTENSION
     Dosage: AS PULM. HTN PERSISTED PER ECHO, DOSE FIRST INCREASED TO 125MG BID, THEN STOPPED.
     Dates: start: 20040105, end: 20040901

REACTIONS (5)
  - ACUTE MYELOID LEUKAEMIA [None]
  - COMPUTERISED TOMOGRAM THORAX ABNORMAL [None]
  - DEVICE INEFFECTIVE [None]
  - PROCEDURAL COMPLICATION [None]
  - PULMONARY HYPERTENSION [None]
